FAERS Safety Report 10336031 (Version 2)
Quarter: 2014Q3

REPORT INFORMATION
  Report Type: Spontaneous
  Country: US (occurrence: US)
  Receive Date: 20140723
  Receipt Date: 20140723
  Transmission Date: 20150326
  Serious: Yes (Other)
  Sender: FDA-Public Use
  Company Number: US-BRISTOL-MYERS SQUIBB COMPANY-19526599

PATIENT
  Age: 8 Decade
  Sex: Male

DRUGS (2)
  1. COUMADIN [Suspect]
     Active Substance: WARFARIN SODIUM
  2. XARELTO [Suspect]
     Active Substance: RIVAROXABAN
     Dosage: FILM COATED TABS
     Route: 048

REACTIONS (3)
  - Deep vein thrombosis [Unknown]
  - Cerebral haemorrhage [Unknown]
  - Product quality issue [Unknown]
